FAERS Safety Report 20793355 (Version 14)
Quarter: 2024Q3

REPORT INFORMATION
  Report Type: Spontaneous
  Country: CA (occurrence: CA)
  Receive Date: 20220506
  Receipt Date: 20240912
  Transmission Date: 20241017
  Serious: Yes (Other)
  Sender: CELLTRION
  Company Number: CA-CELLTRION INC.-2022CA005934

PATIENT

DRUGS (22)
  1. INFLECTRA [Suspect]
     Active Substance: INFLIXIMAB-DYYB
     Indication: Crohn^s disease
     Dosage: 400 MG, Q0,2,6 WEEKS, THEN EVERY 8 WEEKS
     Route: 042
     Dates: start: 20180118
  2. INFLECTRA [Suspect]
     Active Substance: INFLIXIMAB-DYYB
     Dosage: 400 MG, Q0,2,6 WEEKS, THEN EVERY 8 WEEKS
     Route: 042
     Dates: start: 20201021
  3. INFLECTRA [Suspect]
     Active Substance: INFLIXIMAB-DYYB
     Dosage: 5 MG/KG, RE-INDUCTION WEEK 0,2,6 THEN Q 8 WEEKS
     Route: 042
     Dates: start: 20220511, end: 20220511
  4. INFLECTRA [Suspect]
     Active Substance: INFLIXIMAB-DYYB
     Dosage: 500 MG, SUPPOSED TO RECEIVE 5 MG/KG, RE-INDUCTION WEEK 0,2,6 THEN Q 8 WEEKS
     Route: 042
     Dates: start: 20220608
  5. INFLECTRA [Suspect]
     Active Substance: INFLIXIMAB-DYYB
     Dosage: 500 MG, SUPPOSED TO RECEIVE 5 MG/KG, RE-INDUCTION WEEK 0,2,6 THEN Q 8 WEEKS
     Route: 042
     Dates: start: 20220622
  6. INFLECTRA [Suspect]
     Active Substance: INFLIXIMAB-DYYB
     Dosage: 5 MG/KG, EVERY 8 WEEKS
     Route: 042
     Dates: start: 20221108
  7. INFLECTRA [Suspect]
     Active Substance: INFLIXIMAB-DYYB
     Dosage: 5 MG/KG, EVERY 8 WEEKS
     Route: 042
     Dates: start: 20230104
  8. INFLECTRA [Suspect]
     Active Substance: INFLIXIMAB-DYYB
     Dosage: 5 MG/KG,  EVERY 8 WEEKS
     Route: 042
     Dates: start: 20230301
  9. INFLECTRA [Suspect]
     Active Substance: INFLIXIMAB-DYYB
     Dosage: 5 MG/KG, RE-INDUCTION WEEK 0,2,6 THEN Q 8 WEEKS
     Route: 042
     Dates: start: 20230426
  10. INFLECTRA [Suspect]
     Active Substance: INFLIXIMAB-DYYB
     Dosage: 360 MG, EVERY 8 WEEKS
     Route: 042
     Dates: start: 20230621
  11. INFLECTRA [Suspect]
     Active Substance: INFLIXIMAB-DYYB
     Dosage: 5 MG/KG, RE-INDUCTION WEEK 0,2,6 THEN Q 8 WEEKS
     Route: 042
     Dates: start: 20230817
  12. INFLECTRA [Suspect]
     Active Substance: INFLIXIMAB-DYYB
     Dosage: 5 MG/KG (360 MG), AFTER 7 WEEKS AND 6 DAYS (PRESCRIBED EVERY 8 WEEKS)
     Route: 042
     Dates: start: 20231010
  13. INFLECTRA [Suspect]
     Active Substance: INFLIXIMAB-DYYB
     Dosage: 5 MG/KG, RE-INDUCTION WEEK 0,2,6 THEN Q 8 WEEKS
     Route: 042
     Dates: start: 20231129
  14. INFLECTRA [Suspect]
     Active Substance: INFLIXIMAB-DYYB
     Dosage: 5 MG/KG (365MG), EVERY 8 WEEKS
     Route: 042
     Dates: start: 20240125
  15. INFLECTRA [Suspect]
     Active Substance: INFLIXIMAB-DYYB
     Dosage: 5 MG/KG (375 MG), AFTER 7 WEEKS AND 6 DAYS (PRESCRIBED EVERY 8 WEEKS)
     Route: 042
     Dates: start: 20240320
  16. INFLECTRA [Suspect]
     Active Substance: INFLIXIMAB-DYYB
     Dosage: 5 MG/KG, RE-INDUCTION WEEK 0,2,6 THEN Q 8 WEEKS
     Route: 042
     Dates: start: 20240515
  17. INFLECTRA [Suspect]
     Active Substance: INFLIXIMAB-DYYB
     Dosage: 5 MG/KG (350 MG), EVERY 8 WEEKS
     Route: 042
     Dates: start: 20240710
  18. INFLECTRA [Suspect]
     Active Substance: INFLIXIMAB-DYYB
     Dosage: 5 MG/KG (370 MG), EVERY 8 WEEKS
     Route: 042
     Dates: start: 20240904
  19. ASACOL [Concomitant]
     Active Substance: MESALAMINE
     Dosage: 1600 MG, 2X/DAY, DISCONTINUED ON UNK DATE
     Route: 048
     Dates: start: 2014
  20. IMURAN [Concomitant]
     Active Substance: AZATHIOPRINE
     Dosage: 50 MG, 1X/DAY, DISCONTINUED ON UNK DATE
     Route: 048
     Dates: start: 20171223
  21. PREDNISONE [Concomitant]
     Active Substance: PREDNISONE
     Dosage: UNK
     Route: 065
  22. PREDNISONE [Concomitant]
     Active Substance: PREDNISONE
     Dosage: 1 DF DOSE UNK
     Route: 065

REACTIONS (8)
  - Crohn^s disease [Unknown]
  - Condition aggravated [Recovering/Resolving]
  - Sinusitis [Not Recovered/Not Resolved]
  - COVID-19 [Recovering/Resolving]
  - Body temperature increased [Unknown]
  - Arthralgia [Not Recovered/Not Resolved]
  - Incorrect dose administered [Unknown]
  - Off label use [Unknown]

NARRATIVE: CASE EVENT DATE: 20220501
